FAERS Safety Report 5383654-5 (Version None)
Quarter: 2007Q3

REPORT INFORMATION
  Report Type: 
  Country: None (occurrence: None)
  Receive Date: 20070706
  Receipt Date: 20070626
  Transmission Date: 20080115
  Serious: Yes (Hospitalization)
  Sender: FDA-Public Use
  Company Number: 2005BI012930

PATIENT
  Age: 59 Year
  Sex: Female
  Weight: 49.8957 kg

DRUGS (5)
  1. AVONEX [Suspect]
     Indication: MULTIPLE SCLEROSIS
     Dosage: 30 UG QW IM
     Route: 030
     Dates: start: 20040926
  2. AMANTADINE HCL [Concomitant]
  3. NEURONTIN [Concomitant]
  4. CLARINEX [Concomitant]
  5. AN IHALER [Concomitant]

REACTIONS (10)
  - ANXIETY [None]
  - BLOOD POTASSIUM DECREASED [None]
  - DIZZINESS [None]
  - EATING DISORDER [None]
  - FEELING ABNORMAL [None]
  - HALLUCINATION, VISUAL [None]
  - MULTIPLE SCLEROSIS RELAPSE [None]
  - NAUSEA [None]
  - SKIN DISORDER [None]
  - TREMOR [None]
